FAERS Safety Report 22661086 (Version 1)
Quarter: 2023Q2

REPORT INFORMATION
  Report Type: Spontaneous
  Country: US (occurrence: US)
  Receive Date: 20230630
  Receipt Date: 20230630
  Transmission Date: 20230722
  Serious: No
  Sender: FDA-Public Use
  Company Number: US-JAZZ PHARMACEUTICALS-2023-US-010911

PATIENT
  Sex: Female
  Weight: 13.5 kg

DRUGS (1)
  1. EPIDIOLEX [Suspect]
     Active Substance: CANNABIDIOL
     Indication: Status epilepticus
     Dosage: 0.5 ML BID FOR 1ST WEEK THEN 1 ML BID FOR THE 2ND WEEK AND THEREAFTER
     Dates: start: 202304

REACTIONS (2)
  - Adverse reaction [Unknown]
  - Off label use [Unknown]
